FAERS Safety Report 14459877 (Version 1)
Quarter: 2018Q1

REPORT INFORMATION
  Report Type: Spontaneous
  Country: US (occurrence: US)
  Receive Date: 20180129
  Receipt Date: 20180129
  Transmission Date: 20180509
  Serious: Yes (Disabling)
  Sender: FDA-Public Use
  Company Number: None

PATIENT
  Age: 63 Year
  Sex: Male
  Weight: 90 kg

DRUGS (6)
  1. PROBIOTIC [Concomitant]
     Active Substance: PROBIOTICS NOS
  2. CIPROFLOXACIN HCL 250 MG TAB [Suspect]
     Active Substance: BENZYL ALCOHOL\CIPROFLOXACIN HYDROCHLORIDE\HYDROCORTISONE
     Indication: URINARY TRACT INFECTION
     Dosage: ?          QUANTITY:1 TABLET(S);?
     Route: 048
     Dates: start: 20180123, end: 20180126
  3. UNIQUINOL TRANS-RESVERATROL [Concomitant]
  4. TURMERIC [Concomitant]
     Active Substance: HERBALS\TURMERIC
  5. MULTI VITAMIN [Concomitant]
     Active Substance: VITAMINS
  6. ASTAXANTHIN [Concomitant]

REACTIONS (3)
  - Gait inability [None]
  - Pain in extremity [None]
  - Arthralgia [None]

NARRATIVE: CASE EVENT DATE: 20180124
